FAERS Safety Report 6666475-2 (Version None)
Quarter: 2010Q2

REPORT INFORMATION
  Report Type: 
  Country: None (occurrence: None)
  Receive Date: 20100402
  Receipt Date: 20100324
  Transmission Date: 20101027
  Serious: Yes (Congenital Anomaly)
  Sender: FDA-Public Use
  Company Number: US-ABBOTT-10P-163-0634234-00

PATIENT
  Sex: Male
  Weight: 3.08 kg

DRUGS (7)
  1. LEVOTHYROXINE SODIUM [Suspect]
     Indication: DRUG EXPOSURE DURING PREGNANCY
     Route: 064
  2. LEXAPRO [Suspect]
     Indication: DRUG EXPOSURE DURING PREGNANCY
     Route: 064
  3. PROVIGIL [Suspect]
     Indication: DRUG EXPOSURE DURING PREGNANCY
     Route: 064
  4. METFORMIN (GLUCOPHAGE) [Suspect]
     Indication: DRUG EXPOSURE DURING PREGNANCY
     Route: 064
  5. BUSPAR [Suspect]
     Indication: DRUG EXPOSURE DURING PREGNANCY
     Route: 064
  6. NASONEX [Suspect]
     Indication: DRUG EXPOSURE DURING PREGNANCY
     Route: 064
  7. OB NATAL [Suspect]
     Indication: DRUG EXPOSURE DURING PREGNANCY
     Route: 064

REACTIONS (3)
  - DRUG EXPOSURE DURING PREGNANCY [None]
  - TRANSPOSITION OF THE GREAT VESSELS [None]
  - VENTRICULAR SEPTAL DEFECT [None]
